FAERS Safety Report 4365360-9 (Version None)
Quarter: 2004Q2

REPORT INFORMATION
  Report Type: 
  Country: None (occurrence: None)
  Receive Date: 20040525
  Receipt Date: 20040430
  Transmission Date: 20050107
  Serious: Yes (Hospitalization)
  Sender: FDA-Public Use
  Company Number: USA030742059

PATIENT
  Age: 59 Year
  Sex: Female
  Weight: 125 kg

DRUGS (22)
  1. HUMULIN 70/30 [Suspect]
     Indication: DIABETES MELLITUS
     Dosage: 45 U DAY
     Dates: start: 19960801
  2. HUMULIN R [Suspect]
     Indication: DIABETES MELLITUS
     Dates: start: 19960801
  3. NITROQUICK (GLYCERYL TRINITRATE) [Concomitant]
  4. NITROPATCH (GLYCERYL TRINITRATE) [Concomitant]
  5. HYDROCODONE [Concomitant]
  6. TYLENOL [Concomitant]
  7. NEURONTIN [Concomitant]
  8. NORVASC [Concomitant]
  9. PLAVIX [Concomitant]
  10. LIPITOR [Concomitant]
  11. PRAVACHOL [Concomitant]
  12. EFFEXOR [Concomitant]
  13. PRANDIN (PRANDIN) [Concomitant]
  14. AVALIDE [Concomitant]
  15. LEVOTHROID [Concomitant]
  16. METOPROLOL TARTRATE [Concomitant]
  17. CLONIDINE HCL [Concomitant]
  18. DEMADEX [Concomitant]
  19. POTASSIUM [Concomitant]
  20. TEMAZEPAM [Concomitant]
  21. MAGNESIUM [Concomitant]
  22. PROTONIX [Concomitant]

REACTIONS (12)
  - ARTHRITIS [None]
  - CARDIAC DISORDER [None]
  - CONDITION AGGRAVATED [None]
  - DIABETES MELLITUS INADEQUATE CONTROL [None]
  - FINGER DEFORMITY [None]
  - GUILLAIN-BARRE SYNDROME [None]
  - HAND DEFORMITY [None]
  - MEDICAL DEVICE COMPLICATION [None]
  - MYALGIA [None]
  - NEUROPATHY [None]
  - PHARMACEUTICAL PRODUCT COMPLAINT [None]
  - WEIGHT INCREASED [None]
